FAERS Safety Report 7927009 (Version 2)
Quarter: 2013Q1

REPORT INFORMATION
  Report Type: Spontaneous
  Country: US (occurrence: US)
  Receive Date: 20110502
  Receipt Date: 20130102
  Transmission Date: 20140127
  Serious: No
  Sender: FDA-Public Use
  Company Number: US-ASTRAZENECA-2011SE03837

PATIENT
  Age: 63 Year
  Sex: Female

DRUGS (2)
  1. SYMBICORT PMDI [Suspect]
     Indication: ASTHMA
     Route: 055
  2. NEXIUM [Suspect]
     Route: 048

REACTIONS (4)
  - Feeling abnormal [Unknown]
  - Gastrooesophageal reflux disease [Unknown]
  - Asthma [Unknown]
  - Intentional drug misuse [Unknown]
